FAERS Safety Report 4324016-9 (Version None)
Quarter: 2004Q1

REPORT INFORMATION
  Report Type: 
  Country: None (occurrence: None)
  Receive Date: 20040326
  Receipt Date: 20031209
  Transmission Date: 20041129
  Serious: No
  Sender: FDA-Public Use
  Company Number: US-GLAXOSMITHKLINE-A0442532A

PATIENT
  Age: 58 Year
  Sex: Female

DRUGS (3)
  1. ADVAIR DISKUS 100/50 [Suspect]
     Route: 055
  2. ALLEGRA [Concomitant]
  3. NEXIUM [Concomitant]

REACTIONS (1)
  - ORAL CANDIDIASIS [None]
